FAERS Safety Report 5110062-4 (Version None)
Quarter: 2006Q3

REPORT INFORMATION
  Report Type: 
  Country: None (occurrence: None)
  Receive Date: 20060919
  Receipt Date: 20060919
  Transmission Date: 20061208
  Serious: Yes (Other)
  Sender: FDA-Public Use
  Company Number: None

PATIENT
  Sex: Male

DRUGS (1)
  1. TRILYTE [Suspect]
     Indication: PROPHYLAXIS
     Dosage: 4000 ML X 1 PO
     Route: 048
     Dates: start: 20060805

REACTIONS (2)
  - ABDOMINAL PAIN [None]
  - VOMITING [None]
